FAERS Safety Report 4703878-7 (Version None)
Quarter: 2005Q2

REPORT INFORMATION
  Report Type: 
  Country: None (occurrence: None)
  Receive Date: 20050628
  Receipt Date: 20050620
  Transmission Date: 20051028
  Serious: Yes (Disabling, Other)
  Sender: FDA-Public Use
  Company Number: 2005061292

PATIENT
  Age: 73 Year
  Sex: Male
  Weight: 112.4921 kg

DRUGS (5)
  1. LIPITOR [Suspect]
     Indication: BLOOD CHOLESTEROL INCREASED
     Dosage: 10 MG (10 MG, 1 IN 1 D),
     Dates: start: 20021115, end: 20041001
  2. LEUPRORELIN (LEUPRORELIN) [Suspect]
     Indication: PROSTATE CANCER
     Dosage: SUBCUTANEOUS
     Route: 058
  3. MULTIVITAMIN [Concomitant]
  4. FISH OIL (FISH OIL) [Concomitant]
  5. ASPIRIN [Concomitant]

REACTIONS (9)
  - ARTHRITIS [None]
  - HAND DEFORMITY [None]
  - HOT FLUSH [None]
  - HYPOAESTHESIA [None]
  - MUSCLE TIGHTNESS [None]
  - NEUROPATHY PERIPHERAL [None]
  - PROSTATE CANCER [None]
  - RADIAL TUNNEL SYNDROME [None]
  - TENDINOUS CONTRACTURE [None]
